FAERS Safety Report 12823216 (Version 2)
Quarter: 2016Q4

REPORT INFORMATION
  Report Type: Spontaneous
  Country: US (occurrence: US)
  Receive Date: 20161007
  Receipt Date: 20161104
  Transmission Date: 20170207
  Serious: No
  Sender: FDA-Public Use
  Company Number: US-VERTEX PHARMACEUTICALS-2016-005700

PATIENT
  Age: 24 Year
  Sex: Female

DRUGS (1)
  1. ORKAMBI [Suspect]
     Active Substance: IVACAFTOR\LUMACAFTOR
     Indication: CYSTIC FIBROSIS
     Dosage: 400-250MG, BID
     Route: 048
     Dates: start: 20160401

REACTIONS (3)
  - Visual impairment [Unknown]
  - Lenticular opacities [Unknown]
  - Liver function test increased [Unknown]

NARRATIVE: CASE EVENT DATE: 20160703
